FAERS Safety Report 7230797-7 (Version None)
Quarter: 2011Q1

REPORT INFORMATION
  Report Type: 
  Country: None (occurrence: None)
  Receive Date: 20110118
  Receipt Date: 20110107
  Transmission Date: 20110831
  Serious: Yes (Other)
  Sender: FDA-Public Use
  Company Number: IE-SANOFI-AVENTIS-2011SA001452

PATIENT
  Age: 33 Year
  Sex: Male

DRUGS (1)
  1. ENOXAPARIN SODIUM [Suspect]
     Indication: VENOUS THROMBOSIS LIMB
     Route: 065

REACTIONS (3)
  - SUPERIOR VENA CAVA SYNDROME [None]
  - THROMBOSIS [None]
  - DRUG INEFFECTIVE [None]
